FAERS Safety Report 17507959 (Version 1)
Quarter: 2020Q1

REPORT INFORMATION
  Report Type: Spontaneous
  Country: NL (occurrence: NL)
  Receive Date: 20200305
  Receipt Date: 20200305
  Transmission Date: 20200409
  Serious: Yes (Other)
  Sender: FDA-Public Use
  Company Number: NL-TEVA-2020-NL-1195479

PATIENT
  Age: 76 Year
  Sex: Male
  Weight: 90 kg

DRUGS (4)
  1. THYRAX (LEVOTHYROXINE) [Concomitant]
     Dosage: TABLET, 100 MCG (MICROGRAM)
  2. TAMSULOSIN 0.4 MG [Suspect]
     Active Substance: TAMSULOSIN
     Indication: NOCTURIA
     Dosage: CAPSULE, 1 X P/D
     Route: 065
     Dates: start: 20200203, end: 20200204
  3. HYDROCORTISON [Concomitant]
     Active Substance: HYDROCORTISONE
     Dosage: CAPSULE, 10 MG (MILLIGRAM)
     Route: 065
  4. THYRAX (LEVOTHYROXINE) [Concomitant]
     Dosage: TABLET, 25 MCG (MICROGRAM)

REACTIONS (3)
  - Visual impairment [Recovering/Resolving]
  - Syncope [Recovering/Resolving]
  - Dizziness [Recovering/Resolving]

NARRATIVE: CASE EVENT DATE: 20200203
